FAERS Safety Report 17452341 (Version 4)
Quarter: 2021Q1

REPORT INFORMATION
  Report Type: Report from Study
  Country: US (occurrence: US)
  Receive Date: 20200224
  Receipt Date: 20210308
  Transmission Date: 20210419
  Serious: No
  Sender: FDA-Public Use
  Company Number: NVSC2020US050191

PATIENT
  Sex: Female

DRUGS (1)
  1. ENTRESTO [Suspect]
     Active Substance: SACUBITRIL\VALSARTAN
     Indication: PRODUCT USED FOR UNKNOWN INDICATION
     Dosage: 50 MG, BID (24/26 MG)
     Route: 048
     Dates: start: 202002

REACTIONS (6)
  - Tachycardia [Unknown]
  - Nervousness [Unknown]
  - Hypertension [Unknown]
  - Illness [Unknown]
  - Heart rate increased [Unknown]
  - Insomnia [Unknown]
